FAERS Safety Report 10022207 (Version 1)
Quarter: 2014Q1

REPORT INFORMATION
  Report Type: Spontaneous
  Country: DE (occurrence: DE)
  Receive Date: 20140319
  Receipt Date: 20140319
  Transmission Date: 20141002
  Serious: Yes (Other)
  Sender: FDA-Public Use
  Company Number: DE-PFIZER INC-2014072530

PATIENT
  Age: 74 Year
  Sex: Female

DRUGS (1)
  1. LATANOPROST [Suspect]

REACTIONS (5)
  - Glaucoma [Unknown]
  - Intraocular pressure increased [Unknown]
  - Cataract [Unknown]
  - Visual impairment [Unknown]
  - Chromatopsia [Unknown]
